FAERS Safety Report 5375308-6 (Version None)
Quarter: 2007Q2

REPORT INFORMATION
  Report Type: 
  Country: None (occurrence: None)
  Receive Date: 20070629
  Receipt Date: 20070619
  Transmission Date: 20071010
  Serious: Yes (Hospitalization)
  Sender: FDA-Public Use
  Company Number: US-ELI_LILLY_AND_COMPANY-US200706004268

PATIENT
  Age: 74 Year
  Sex: Female

DRUGS (5)
  1. FORTEO [Suspect]
     Indication: OSTEOPOROSIS
     Dates: start: 20050201
  2. FORTEO [Suspect]
  3. COUMADIN [Concomitant]
  4. CELEBREX [Concomitant]
  5. TYLENOL /USA/ [Concomitant]

REACTIONS (4)
  - CARDIAC FAILURE CONGESTIVE [None]
  - CONTUSION [None]
  - FALL [None]
  - RENAL IMPAIRMENT [None]
